FAERS Safety Report 12857614 (Version 1)
Quarter: 2016Q4

REPORT INFORMATION
  Report Type: Spontaneous
  Country: IT (occurrence: IT)
  Receive Date: 20161018
  Receipt Date: 20161018
  Transmission Date: 20170207
  Serious: Yes (Other)
  Sender: FDA-Public Use
  Company Number: IT-BAYER-2016-195264

PATIENT
  Age: 54 Year
  Sex: Male

DRUGS (1)
  1. SORAFENIB (RAF KINASE INHIBITOR) [Suspect]
     Active Substance: SORAFENIB
     Dosage: UNK
     Dates: start: 2009, end: 2009

REACTIONS (1)
  - Haematotoxicity [None]

NARRATIVE: CASE EVENT DATE: 2009
